FAERS Safety Report 15776957 (Version 8)
Quarter: 2019Q3

REPORT INFORMATION
  Report Type: Report from Study
  Country: US (occurrence: US)
  Receive Date: 20181231
  Receipt Date: 20190912
  Transmission Date: 20191004
  Serious: Yes (Hospitalization, Other)
  Sender: FDA-Public Use
  Company Number: US-MALLINCKRODT-T201702770

PATIENT
  Sex: Female

DRUGS (9)
  1. PLAVIX [Suspect]
     Active Substance: CLOPIDOGREL BISULFATE
     Indication: PERIPHERAL VASCULAR DISORDER
     Dosage: UNK
     Route: 065
     Dates: end: 20190315
  2. PROLIA [Concomitant]
     Active Substance: DENOSUMAB
     Indication: OSTEOPENIA
  3. REPOSITORY CORTICOTROPIN INJECTION [Suspect]
     Active Substance: CORTICOTROPIN
     Indication: RHEUMATOID ARTHRITIS
     Dosage: 40 UNITS/0.5 ML, WEEKLY
     Route: 058
     Dates: start: 20150409, end: 201504
  4. BREO ELLIPTA [Concomitant]
     Active Substance: FLUTICASONE FUROATE\VILANTEROL TRIFENATATE
     Indication: PRODUCT USED FOR UNKNOWN INDICATION
     Dosage: UNK
     Route: 065
  5. PROLIA [Concomitant]
     Active Substance: DENOSUMAB
     Indication: OSTEOPOROSIS
     Dosage: UNK
     Route: 065
  6. PERCOCET [Suspect]
     Active Substance: ACETAMINOPHEN\OXYCODONE HYDROCHLORIDE
     Indication: PAIN
     Dosage: UNK
     Route: 065
  7. FORTEO [Concomitant]
     Active Substance: TERIPARATIDE
     Indication: PRODUCT USED FOR UNKNOWN INDICATION
     Dosage: UNK
     Route: 065
  8. REPOSITORY CORTICOTROPIN INJECTION [Suspect]
     Active Substance: CORTICOTROPIN
     Dosage: 40 UNITS/0.5 ML, 1 TIME WEEKLY (MONDAY)
     Route: 058
     Dates: start: 20150413
  9. REPOSITORY CORTICOTROPIN INJECTION [Suspect]
     Active Substance: CORTICOTROPIN
     Dosage: 40 UNITS/0.5 ML, 1 TIME WEEKLY (MONDAY)
     Route: 058

REACTIONS (32)
  - Heart rate irregular [Unknown]
  - Memory impairment [Unknown]
  - Laziness [Unknown]
  - Fall [Not Recovered/Not Resolved]
  - Joint injury [Unknown]
  - Discomfort [Unknown]
  - Constipation [Unknown]
  - Cystitis viral [Unknown]
  - Surgery [Not Recovered/Not Resolved]
  - Haemorrhage [Unknown]
  - Alopecia [Not Recovered/Not Resolved]
  - Wound infection [Recovering/Resolving]
  - Osteopenia [Unknown]
  - Contusion [Not Recovered/Not Resolved]
  - Vascular insufficiency [Unknown]
  - Gait disturbance [Not Recovered/Not Resolved]
  - Skin laceration [Recovering/Resolving]
  - Malaise [Not Recovered/Not Resolved]
  - Depression [Unknown]
  - Weight decreased [Unknown]
  - Joint lock [Unknown]
  - Cataract [Unknown]
  - Balance disorder [Unknown]
  - Arthropathy [Not Recovered/Not Resolved]
  - Nasopharyngitis [Unknown]
  - Dehydration [Unknown]
  - Platelet count decreased [Unknown]
  - Visual impairment [Not Recovered/Not Resolved]
  - Musculoskeletal discomfort [Not Recovered/Not Resolved]
  - Walking aid user [Unknown]
  - Peripheral coldness [Not Recovered/Not Resolved]
  - Skin atrophy [Unknown]
